APPROVED DRUG PRODUCT: BRIMONIDINE TARTRATE
Active Ingredient: BRIMONIDINE TARTRATE
Strength: 0.15%
Dosage Form/Route: SOLUTION/DROPS;OPHTHALMIC
Application: A078479 | Product #001 | TE Code: AT
Applicant: APOTEX INC
Approved: Jan 31, 2022 | RLD: No | RS: No | Type: RX